FAERS Safety Report 22246188 (Version 4)
Quarter: 2023Q2

REPORT INFORMATION
  Report Type: Spontaneous
  Country: US (occurrence: US)
  Receive Date: 20230424
  Receipt Date: 20230531
  Transmission Date: 20230722
  Serious: Yes (Other)
  Sender: FDA-Public Use
  Company Number: US-JNJFOC-20230434330

PATIENT
  Age: 79 Year
  Sex: Male

DRUGS (4)
  1. ZYTIGA [Suspect]
     Active Substance: ABIRATERONE ACETATE
     Indication: Prostate cancer
     Route: 048
     Dates: start: 202210
  2. ZYTIGA [Suspect]
     Active Substance: ABIRATERONE ACETATE
     Route: 048
     Dates: start: 202210
  3. BURDOCK ROOT [Concomitant]
  4. PREDNISONE [Concomitant]
     Active Substance: PREDNISONE

REACTIONS (9)
  - Drug-induced liver injury [Unknown]
  - Blood pressure increased [Unknown]
  - Migraine [Unknown]
  - Palpitations [Unknown]
  - Blood potassium abnormal [Unknown]
  - Asthenia [Unknown]
  - Diarrhoea [Unknown]
  - Blood magnesium abnormal [Unknown]
  - Illness [Unknown]
